FAERS Safety Report 5061495-6 (Version None)
Quarter: 2006Q3

REPORT INFORMATION
  Report Type: 
  Country: None (occurrence: None)
  Receive Date: 20060703
  Receipt Date: 20060420
  Transmission Date: 20061208
  Serious: No
  Sender: FDA-Public Use
  Company Number: 2006PV012439

PATIENT
  Age: 68 Year
  Sex: Female
  Weight: 99.7913 kg

DRUGS (6)
  1. SYMLIN [Suspect]
     Indication: DIABETES MELLITUS NON-INSULIN-DEPENDENT
     Dosage: 120 MCG;TID;SC
     Route: 058
     Dates: start: 20060101
  2. HUMALOG [Concomitant]
  3. LANTUS [Concomitant]
  4. METFORMIN [Concomitant]
  5. COREG [Concomitant]
  6. BENICAR [Concomitant]

REACTIONS (3)
  - DYSPNOEA [None]
  - FATIGUE [None]
  - NAUSEA [None]
